FAERS Safety Report 6252775-7 (Version None)
Quarter: 2009Q3

REPORT INFORMATION
  Report Type: 
  Country: None (occurrence: None)
  Receive Date: 20090701
  Receipt Date: 20090622
  Transmission Date: 20100115
  Serious: Yes (Death, Hospitalization)
  Sender: FDA-Public Use
  Company Number: US-PURDUE-USA-2008-0035060

PATIENT
  Sex: Male
  Weight: 78.912 kg

DRUGS (11)
  1. OXYCONTIN [Suspect]
     Indication: DRUG USE FOR UNKNOWN INDICATION
     Dosage: 20 MG, BID
     Route: 048
     Dates: start: 20061003
  2. NO SUBJECT DRUG [Suspect]
     Indication: DRUG USE FOR UNKNOWN INDICATION
     Dosage: UNK, UNK
  3. OXYCODONE HYDROCHLORIDE [Suspect]
     Indication: DRUG USE FOR UNKNOWN INDICATION
     Dosage: 5 MG, Q4H PRN
     Route: 048
     Dates: start: 20061031
  4. GAS X [Concomitant]
     Indication: DRUG USE FOR UNKNOWN INDICATION
     Dosage: UNK, UNK
     Route: 048
  5. POLYETHYLENE GLYCOL [Concomitant]
     Indication: DRUG USE FOR UNKNOWN INDICATION
     Dosage: 17 GRAM, DAILY
     Route: 048
  6. PAN-MIST [Concomitant]
     Indication: DRUG USE FOR UNKNOWN INDICATION
     Dosage: 2 UNK, DAILY
     Route: 048
  7. LOVASTATIN [Concomitant]
     Indication: DRUG USE FOR UNKNOWN INDICATION
     Dosage: 40 MG, DAILY
     Route: 048
  8. COMPAZINE                          /00013302/ [Concomitant]
     Indication: DRUG USE FOR UNKNOWN INDICATION
     Dosage: 10 MG, DAILY
     Route: 048
  9. MULTI-VITAMINS [Concomitant]
     Indication: DRUG USE FOR UNKNOWN INDICATION
     Dosage: 1 UNK, DAILY
     Route: 048
  10. CIALIS [Concomitant]
     Indication: DRUG USE FOR UNKNOWN INDICATION
     Dosage: 20 MG, PRN
     Route: 048
  11. LOTREL [Concomitant]
     Indication: DRUG USE FOR UNKNOWN INDICATION
     Dosage: UNK MG, DAILY
     Route: 048

REACTIONS (4)
  - CONSTIPATION [None]
  - DISEASE PROGRESSION [None]
  - NON-SMALL CELL LUNG CANCER [None]
  - PULMONARY EMBOLISM [None]
